FAERS Safety Report 6814226-0 (Version None)
Quarter: 2010Q3

REPORT INFORMATION
  Report Type: 
  Country: None (occurrence: None)
  Receive Date: 20100702
  Receipt Date: 20100622
  Transmission Date: 20110219
  Serious: Yes (Other)
  Sender: FDA-Public Use
  Company Number: BR-TEVA-238582USA

PATIENT
  Sex: Male

DRUGS (2)
  1. PIMOZIDE TABLETS [Suspect]
  2. UNKNOWN MEDICATION [Suspect]

REACTIONS (2)
  - LOCALISED OEDEMA [None]
  - TREMOR [None]
